FAERS Safety Report 5521002-8 (Version None)
Quarter: 2007Q4

REPORT INFORMATION
  Report Type: 
  Country: None (occurrence: None)
  Receive Date: 20071119
  Receipt Date: 20071107
  Transmission Date: 20080405
  Serious: Yes (Hospitalization)
  Sender: FDA-Public Use
  Company Number: PT-ROCHE-527366

PATIENT
  Age: 66 Year
  Sex: Female
  Weight: 51 kg

DRUGS (1)
  1. XELODA [Suspect]
     Dosage: STRENGTH 500 AND 150 MG TABLETS; 2 CYCLES (21 DAYS), STOPPED ON DAY 14.
     Route: 048
     Dates: start: 20070901

REACTIONS (1)
  - PERIPHERAL EMBOLISM [None]
